FAERS Safety Report 21798405 (Version 1)
Quarter: 2022Q4

REPORT INFORMATION
  Report Type: Spontaneous
  Country: KR (occurrence: KR)
  Receive Date: 20221230
  Receipt Date: 20221230
  Transmission Date: 20230113
  Serious: Yes (Hospitalization, Other)
  Sender: FDA-Public Use
  Company Number: KR-MACLEODS PHARMACEUTICALS US LTD-MAC2022038999

PATIENT

DRUGS (16)
  1. LIDOCAINE [Suspect]
     Active Substance: LIDOCAINE
     Indication: General anaesthesia
     Dosage: 60 MILLIGRAM, SINGLE (TOTAL)
     Route: 065
  2. LIDOCAINE [Suspect]
     Active Substance: LIDOCAINE
     Indication: Induction of anaesthesia
     Dosage: 7.2 MILLILITER (LIDOCAINE HYDROCHLORIDE 2 %, 144 MG TOTAL, NAME OF APPLICANT HUONS,144 MG TOTAL)
     Route: 065
  3. LIDOCAINE [Suspect]
     Active Substance: LIDOCAINE
     Indication: Dental local anaesthesia
  4. PROPOFOL [Concomitant]
     Active Substance: PROPOFOL
     Indication: General anaesthesia
     Dosage: 160 MILLIGRAM, SINGLE (TOTAL)
     Route: 065
  5. PROPOFOL [Concomitant]
     Active Substance: PROPOFOL
     Indication: Induction of anaesthesia
  6. KETOROLAC [Concomitant]
     Active Substance: KETOROLAC TROMETHAMINE
     Indication: Analgesic therapy
     Dosage: 30 MILLIGRAM
     Route: 065
  7. GLYCOPYRROLATE [Concomitant]
     Active Substance: GLYCOPYRROLATE
     Indication: Product used for unknown indication
     Dosage: 0.4 MILLIGRAM
     Route: 065
  8. PYRIDOSTIGMINE [Concomitant]
     Active Substance: PYRIDOSTIGMINE
     Indication: Product used for unknown indication
     Dosage: 15 MILLIGRAM
     Route: 065
  9. SEVOFLURANE [Concomitant]
     Active Substance: SEVOFLURANE
     Indication: General anaesthesia
     Dosage: UNK
     Route: 065
  10. SEVOFLURANE [Concomitant]
     Active Substance: SEVOFLURANE
     Indication: Maintenance of anaesthesia
  11. ROCURONIUM [Concomitant]
     Active Substance: ROCURONIUM BROMIDE
     Indication: Induction of anaesthesia
     Dosage: 50 MILLIGRAM, SINGLE (TOTAL)
     Route: 065
  12. ROCURONIUM [Concomitant]
     Active Substance: ROCURONIUM BROMIDE
     Indication: General anaesthesia
  13. REMIFENTANIL [Concomitant]
     Active Substance: REMIFENTANIL
     Indication: Induction of anaesthesia
     Dosage: UNK (USING A TARGET-CONTROLLED INFUSION)
     Route: 042
  14. REMIFENTANIL [Concomitant]
     Active Substance: REMIFENTANIL
     Indication: Analgesic therapy
  15. OXYGEN [Concomitant]
     Active Substance: OXYGEN
     Indication: Oxygen therapy
     Dosage: UNK
     Route: 065
  16. SALINE [Concomitant]
     Active Substance: SODIUM CHLORIDE
     Indication: Irrigation therapy
     Dosage: UNK
     Route: 065

REACTIONS (4)
  - Drug level increased [Unknown]
  - Pseudomyopia [Recovered/Resolved]
  - Mydriasis [Recovered/Resolved]
  - Diplopia [Recovered/Resolved]
